FAERS Safety Report 24779384 (Version 2)
Quarter: 2025Q1

REPORT INFORMATION
  Report Type: Spontaneous
  Country: SG (occurrence: SG)
  Receive Date: 20241226
  Receipt Date: 20250102
  Transmission Date: 20250408
  Serious: Yes (Death, Life-Threatening, Hospitalization, Other)
  Sender: PFIZER
  Company Number: SG-MLMSERVICE-20241212-PI297797-00270-1

PATIENT
  Age: 23 Year
  Sex: Male

DRUGS (6)
  1. METHYLPREDNISOLONE SODIUM SUCCINATE [Suspect]
     Active Substance: METHYLPREDNISOLONE SODIUM SUCCINATE
     Indication: Polymyositis
     Dosage: 100 MG, 2X/DAY 2 MG/KG/DAY (FREQUENCY: EVERY 12 HOURS)
  2. METHYLPREDNISOLONE SODIUM SUCCINATE [Suspect]
     Active Substance: METHYLPREDNISOLONE SODIUM SUCCINATE
     Dosage: TAPERED TO 50 MG BD (FREQUENCY: EVERY 12 HOURS)
  3. PREDNISOLONE [Suspect]
     Active Substance: PREDNISOLONE
     Indication: Polymyositis
     Dosage: (FREQUENCY: EVERY 12 HOURS)
  4. PREDNISOLONE [Suspect]
     Active Substance: PREDNISOLONE
     Dosage: TAPERED TO 40 MG OM, EVERY MORNING
  5. PREDNISOLONE [Suspect]
     Active Substance: PREDNISOLONE
     Dosage: INCREASED TO 50 MG OM, EVERY MORNING
  6. PONATINIB [Concomitant]
     Active Substance: PONATINIB
     Dosage: 15 MG, 1X/DAY (EVERY MORNING)

REACTIONS (2)
  - Philadelphia positive chronic myeloid leukaemia [Fatal]
  - Disease recurrence [Fatal]
